FAERS Safety Report 10694665 (Version 2)
Quarter: 2015Q1

REPORT INFORMATION
  Report Type: Spontaneous
  Country: US (occurrence: US)
  Receive Date: 20150107
  Receipt Date: 20150107
  Transmission Date: 20150721
  Serious: Yes (Death, Hospitalization)
  Sender: FDA-Public Use
  Company Number: US-INCYTE CORPORATION-2014IN003526

PATIENT
  Age: 72 Year
  Sex: Male
  Weight: 86 kg

DRUGS (11)
  1. COREG [Concomitant]
     Active Substance: CARVEDILOL
  2. FENOFIBRATE. [Concomitant]
     Active Substance: FENOFIBRATE
  3. JAKAFI [Suspect]
     Active Substance: RUXOLITINIB
     Indication: MYELOFIBROSIS
     Dosage: 20 MG, BID
     Route: 048
     Dates: start: 20141021, end: 20141108
  4. LASIX [Concomitant]
     Active Substance: FUROSEMIDE
  5. VITAMIN C [Concomitant]
     Active Substance: ASCORBIC ACID
  6. ASPIRIN. [Concomitant]
     Active Substance: ASPIRIN
  7. PROTONIX [Concomitant]
     Active Substance: PANTOPRAZOLE SODIUM
  8. KLOR-CON [Concomitant]
     Active Substance: POTASSIUM CHLORIDE
  9. LEXAPRO [Concomitant]
     Active Substance: ESCITALOPRAM OXALATE
  10. FOLIC ACID. [Concomitant]
     Active Substance: FOLIC ACID
  11. FISH OIL [Concomitant]
     Active Substance: FISH OIL

REACTIONS (2)
  - Haemoglobin decreased [Unknown]
  - Death [Fatal]

NARRATIVE: CASE EVENT DATE: 20141108
